FAERS Safety Report 25672364 (Version 6)
Quarter: 2025Q4

REPORT INFORMATION
  Report Type: Spontaneous
  Country: US (occurrence: US)
  Receive Date: 20250812
  Receipt Date: 20251209
  Transmission Date: 20260117
  Serious: No
  Sender: SANOFI AVENTIS
  Company Number: US-SA-2025SA233467

PATIENT
  Age: 52 Year
  Sex: Male

DRUGS (2)
  1. ALPROLIX [Suspect]
     Active Substance: EFTRENONACOG ALFA
     Indication: Prophylaxis
     Dosage: 8500 U,  (+/-10%)
     Route: 042
  2. ALPROLIX [Suspect]
     Active Substance: EFTRENONACOG ALFA
     Indication: Prophylaxis
     Dosage: 8500 U,  (+/-10%)
     Route: 042

REACTIONS (4)
  - Haemorrhage [Recovering/Resolving]
  - Mobility decreased [Unknown]
  - Epistaxis [Unknown]
  - Joint injury [Unknown]

NARRATIVE: CASE EVENT DATE: 20250917
